FAERS Safety Report 8477698-4 (Version None)
Quarter: 2012Q2

REPORT INFORMATION
  Report Type: 
  Country: None (occurrence: None)
  Receive Date: 20120629
  Receipt Date: 20120620
  Transmission Date: 20120825
  Serious: Yes (Hospitalization)
  Sender: FDA-Public Use
  Company Number: DE-JNJFOC-20120409964

PATIENT
  Sex: Female
  Weight: 62.8 kg

DRUGS (2)
  1. ANTIBIOTICS [Concomitant]
  2. REMICADE [Suspect]
     Indication: CROHN'S DISEASE
     Route: 042
     Dates: start: 20100226

REACTIONS (2)
  - CROHN'S DISEASE [None]
  - CONDITION AGGRAVATED [None]
